FAERS Safety Report 17496777 (Version 1)
Quarter: 2020Q1

REPORT INFORMATION
  Report Type: Spontaneous
  Country: US (occurrence: US)
  Receive Date: 20200304
  Receipt Date: 20200304
  Transmission Date: 20200409
  Serious: Yes (Other)
  Sender: FDA-Public Use
  Company Number: None

PATIENT
  Age: 14 Year
  Sex: Male
  Weight: 68.7 kg

DRUGS (3)
  1. HALDOL (HALOPERIDOL LACTATE) [Suspect]
     Active Substance: HALOPERIDOL LACTATE
     Indication: AGITATION
     Route: 030
     Dates: start: 20190519, end: 20190520
  2. DIPHENHYDRAMINE 25MG INJECTION [Concomitant]
     Dates: start: 20190519, end: 20190520
  3. LORAZEPAM 2MG INJECTION [Concomitant]
     Dates: start: 20190519, end: 20190520

REACTIONS (7)
  - Salivary hypersecretion [None]
  - Drug ineffective [None]
  - Dysarthria [None]
  - Swollen tongue [None]
  - Oromandibular dystonia [None]
  - Protrusion tongue [None]
  - Angioedema [None]

NARRATIVE: CASE EVENT DATE: 20190520
